FAERS Safety Report 11836548 (Version 1)
Quarter: 2015Q4

REPORT INFORMATION
  Report Type: Spontaneous
  Country: HR (occurrence: HR)
  Receive Date: 20151215
  Receipt Date: 20151215
  Transmission Date: 20160305
  Serious: Yes (Other)
  Sender: FDA-Public Use
  Company Number: PHHY2015HR160086

PATIENT
  Age: 49 Year
  Sex: Female
  Weight: 70 kg

DRUGS (3)
  1. LEKADOL PLUS C [Suspect]
     Active Substance: ACETAMINOPHEN\ASCORBIC ACID
     Indication: JOINT INJURY
     Dosage: 1 DF, BID
     Route: 048
     Dates: start: 20151015, end: 20151016
  2. ROSIX//ROSUVASTATIN CALCIUM [Concomitant]
     Indication: DYSLIPIDAEMIA
     Dosage: 10 MG, QD
     Route: 048
  3. NINUR [Interacting]
     Active Substance: NITROFURANTOIN
     Indication: CYSTITIS
     Dosage: 50 MG, QID
     Route: 048
     Dates: start: 20151014, end: 20151018

REACTIONS (3)
  - Drug interaction [None]
  - Gingivitis [Recovered/Resolved]
  - Choking [Recovered/Resolved]

NARRATIVE: CASE EVENT DATE: 20151015
